FAERS Safety Report 6177064-0 (Version None)
Quarter: 2009Q2

REPORT INFORMATION
  Report Type: 
  Country: None (occurrence: None)
  Receive Date: 20090504
  Receipt Date: 20090421
  Transmission Date: 20091009
  Serious: Yes (Other)
  Sender: FDA-Public Use
  Company Number: US-CELGENEUS-163-21880-07050606

PATIENT

DRUGS (5)
  1. REVLIMID [Suspect]
     Indication: MULTIPLE MYELOMA
     Route: 048
  2. MELPHALAN [Suspect]
     Indication: MULTIPLE MYELOMA
     Dosage: DOSE LEVEL 0
     Route: 065
  3. MELPHALAN [Suspect]
     Dosage: DOSE LEVEL 1
     Route: 065
  4. PREDNISONE [Suspect]
     Indication: MULTIPLE MYELOMA
     Route: 065
  5. ASPIRIN [Concomitant]
     Indication: DRUG USE FOR UNKNOWN INDICATION
     Route: 065

REACTIONS (8)
  - ANAEMIA [None]
  - FATIGUE [None]
  - HYPERGLYCAEMIA [None]
  - NEUTROPENIA [None]
  - RASH [None]
  - THROMBOCYTOPENIA [None]
  - THROMBOSIS [None]
  - THROMBOSIS IN DEVICE [None]
